FAERS Safety Report 7150708-2 (Version None)
Quarter: 2010Q4

REPORT INFORMATION
  Report Type: 
  Country: None (occurrence: None)
  Receive Date: 20101210
  Receipt Date: 20101130
  Transmission Date: 20110411
  Serious: Yes (Hospitalization)
  Sender: FDA-Public Use
  Company Number: JP-JNJFOC-20101004757

PATIENT
  Age: 12 Year
  Sex: Male
  Weight: 40.95 kg

DRUGS (17)
  1. REMICADE [Suspect]
     Indication: CROHN'S DISEASE
     Route: 042
  2. REMICADE [Suspect]
     Route: 042
  3. REMICADE [Suspect]
     Route: 042
  4. REMICADE [Suspect]
     Route: 042
  5. REMICADE [Suspect]
     Route: 042
  6. REMICADE [Suspect]
     Route: 042
  7. REMICADE [Suspect]
     Route: 042
  8. REMICADE [Suspect]
     Route: 042
  9. REMICADE [Suspect]
     Route: 042
  10. FERROUS CITRATE [Concomitant]
     Indication: IRON DEFICIENCY ANAEMIA
     Route: 048
  11. AZATHIOPRINE [Concomitant]
     Indication: CROHN'S DISEASE
  12. TPN [Concomitant]
  13. TACROLIMUS [Concomitant]
     Indication: CROHN'S DISEASE
  14. SALAZOPYRIN [Concomitant]
     Indication: CROHN'S DISEASE
     Route: 048
  15. PROGRAF [Concomitant]
     Indication: CROHN'S DISEASE
     Route: 048
  16. BIOFERMIN [Concomitant]
     Indication: CROHN'S DISEASE
  17. TAKEPRON [Concomitant]
     Indication: CROHN'S DISEASE
     Route: 048

REACTIONS (5)
  - CROHN'S DISEASE [None]
  - DIARRHOEA [None]
  - PYREXIA [None]
  - TYPE IV HYPERSENSITIVITY REACTION [None]
  - VOMITING [None]
